APPROVED DRUG PRODUCT: LINEZOLID
Active Ingredient: LINEZOLID
Strength: 600MG
Dosage Form/Route: TABLET;ORAL
Application: A207526 | Product #001 | TE Code: AB
Applicant: NOVEL LABORATORIES INC
Approved: Aug 22, 2016 | RLD: No | RS: No | Type: RX